FAERS Safety Report 6752398-7 (Version None)
Quarter: 2010Q2

REPORT INFORMATION
  Report Type: 
  Country: None (occurrence: None)
  Receive Date: 20100602
  Receipt Date: 20100525
  Transmission Date: 20101027
  Serious: Yes (Hospitalization, Other)
  Sender: FDA-Public Use
  Company Number: US-PFIZER INC-23100257

PATIENT
  Age: 74 Year
  Sex: Male
  Weight: 78.9 kg

DRUGS (1)
  1. ARGATROBAN [Suspect]
     Indication: HEPARIN-INDUCED THROMBOCYTOPENIA
     Route: 042

REACTIONS (6)
  - ACCIDENTAL OVERDOSE [None]
  - ATRIAL FIBRILLATION [None]
  - COAGULATION TIME PROLONGED [None]
  - HYPOTENSION [None]
  - MEDICATION ERROR [None]
  - RENAL IMPAIRMENT [None]
